FAERS Safety Report 7298718-9 (Version None)
Quarter: 2011Q1

REPORT INFORMATION
  Report Type: 
  Country: None (occurrence: None)
  Receive Date: 20110217
  Receipt Date: 20110210
  Transmission Date: 20110831
  Serious: Yes (Other)
  Sender: FDA-Public Use
  Company Number: AU-PFIZER INC-2011030373

PATIENT
  Age: 10 Year
  Sex: Female

DRUGS (3)
  1. VFEND [Suspect]
     Indication: ANTIFUNGAL PROPHYLAXIS
     Dosage: TWICE DAILY
     Route: 048
  2. SIROLIMUS [Concomitant]
  3. TACROLIMUS [Concomitant]

REACTIONS (1)
  - PERICARDIAL EFFUSION [None]
